FAERS Safety Report 24962104 (Version 2)
Quarter: 2025Q1

REPORT INFORMATION
  Report Type: Spontaneous
  Country: US (occurrence: US)
  Receive Date: 20250212
  Receipt Date: 20250224
  Transmission Date: 20250408
  Serious: Yes (Other)
  Sender: IOVANCE BIOTHERAPEUTICS MANUFACTURING LLC
  Company Number: CA-IOVANCE BIOTHERAPEUTICS INC.-IOV2025000015

PATIENT

DRUGS (1)
  1. PROLEUKIN [Suspect]
     Active Substance: ALDESLEUKIN
     Indication: Product used for unknown indication
     Route: 042

REACTIONS (3)
  - Tachypnoea [Unknown]
  - Hypoxia [Unknown]
  - Dyspnoea [Unknown]
